FAERS Safety Report 7607244-6 (Version None)
Quarter: 2011Q3

REPORT INFORMATION
  Report Type: 
  Country: None (occurrence: None)
  Receive Date: 20110713
  Receipt Date: 20110630
  Transmission Date: 20111222
  Serious: Yes (Disabling)
  Sender: FDA-Public Use
  Company Number: DE-VALEANT-2011VX001893

PATIENT
  Age: 73 Year
  Sex: Male
  Weight: 86 kg

DRUGS (5)
  1. OPIPRAMOL [Concomitant]
     Route: 065
  2. SIMVASTATIN [Concomitant]
     Route: 065
  3. FLUOROURACIL [Suspect]
     Route: 061
     Dates: start: 20101207, end: 20110107
  4. RAMIPRIL [Concomitant]
     Route: 065
  5. NEBIVOLOL [Concomitant]
     Route: 065

REACTIONS (1)
  - ANOSMIA [None]
